FAERS Safety Report 19224644 (Version 2)
Quarter: 2022Q2

REPORT INFORMATION
  Report Type: Spontaneous
  Country: US (occurrence: None)
  Receive Date: 20210505
  Receipt Date: 20220426
  Transmission Date: 20220721
  Serious: No
  Sender: FDA-Public Use
  Company Number: US-ROCHE-2715723

PATIENT
  Sex: Male
  Weight: 76.272 kg

DRUGS (11)
  1. ESBRIET [Suspect]
     Active Substance: PIRFENIDONE
     Indication: Idiopathic pulmonary fibrosis
     Dosage: ONE TABLET 3 TIMES A DAY
     Route: 048
     Dates: start: 2020
  2. ESBRIET [Suspect]
     Active Substance: PIRFENIDONE
     Dosage: TWO TABLET 3 TIMES A DAY
     Route: 048
     Dates: start: 2020
  3. ESBRIET [Suspect]
     Active Substance: PIRFENIDONE
     Dosage: 3 TABLET 3 TIMES A DAY
     Route: 048
     Dates: start: 2020
  4. ESBRIET [Suspect]
     Active Substance: PIRFENIDONE
     Dosage: 2 TABLET 2 TIMES A DAY
     Route: 048
     Dates: start: 2020
  5. ESBRIET [Suspect]
     Active Substance: PIRFENIDONE
     Route: 048
     Dates: start: 20201106
  6. ATORVASTATIN [Concomitant]
     Active Substance: ATORVASTATIN
     Dates: start: 2013
  7. CARVEDILOL [Concomitant]
     Active Substance: CARVEDILOL
     Dates: start: 2013
  8. ALFUZOSIN [Concomitant]
     Active Substance: ALFUZOSIN
     Dates: start: 2013
  9. ASPIRIN [Concomitant]
     Active Substance: ASPIRIN
     Dates: start: 2013
  10. ENTRESTO [Concomitant]
     Active Substance: SACUBITRIL\VALSARTAN
     Dates: start: 2013
  11. SPIRONOLACTONE [Concomitant]
     Active Substance: SPIRONOLACTONE

REACTIONS (8)
  - Decreased appetite [Recovered/Resolved]
  - Depressed mood [Recovered/Resolved]
  - Incorrect dose administered [Unknown]
  - Illness [Unknown]
  - Asthenia [Unknown]
  - Cough [Not Recovered/Not Resolved]
  - Fungal foot infection [Unknown]
  - Off label use [Unknown]
